FAERS Safety Report 10088008 (Version 1)
Quarter: 2014Q2

REPORT INFORMATION
  Report Type: Spontaneous
  Country: SG (occurrence: SG)
  Receive Date: 20140420
  Receipt Date: 20140420
  Transmission Date: 20141212
  Serious: Yes (Death, Other)
  Sender: FDA-Public Use
  Company Number: PHHY2014SG047716

PATIENT
  Age: 55 Year
  Sex: Male

DRUGS (6)
  1. CICLOSPORIN [Suspect]
     Indication: RENAL TRANSPLANT
     Dosage: 45 MG, QD
  2. THYMOGLOBULIN [Suspect]
     Indication: RENAL TRANSPLANT
  3. PREDNISOLONE [Suspect]
     Indication: RENAL TRANSPLANT
     Dosage: 10 MG, QD
  4. MYCOPHENOLATE MOFETIL [Suspect]
     Indication: RENAL TRANSPLANT
     Dosage: 250 MG, BID
  5. ITRACONAZOLE [Interacting]
     Dosage: 200 MG, BID
  6. ITRACONAZOLE [Concomitant]
     Dosage: 200 MG, QD

REACTIONS (4)
  - Acute myocardial infarction [Fatal]
  - Renal impairment [Not Recovered/Not Resolved]
  - Drug level increased [Unknown]
  - Drug interaction [Unknown]
